FAERS Safety Report 15276556 (Version 1)
Quarter: 2018Q3

REPORT INFORMATION
  Report Type: Spontaneous
  Country: US (occurrence: US)
  Receive Date: 20180729
  Receipt Date: 20180729
  Transmission Date: 20181010
  Serious: No
  Sender: FDA-Public Use
  Company Number: None

PATIENT
  Age: 5 Year
  Sex: Female
  Weight: 14.85 kg

DRUGS (3)
  1. PREDNISOLONE. [Suspect]
     Active Substance: PREDNISOLONE
     Indication: WRONG PATIENT RECEIVED MEDICATION
     Dosage: ?          QUANTITY:25 ML MILLILITRE(S);?
     Route: 048
  2. DECADRON [Suspect]
     Active Substance: DEXAMETHASONE
     Dates: start: 20180721, end: 20180721
  3. AMOXICILLIN. [Concomitant]
     Active Substance: AMOXICILLIN

REACTIONS (2)
  - Wrong patient received medication [None]
  - Drug prescribing error [None]

NARRATIVE: CASE EVENT DATE: 20180721
